FAERS Safety Report 4717745-6 (Version None)
Quarter: 2005Q3

REPORT INFORMATION
  Report Type: 
  Country: None (occurrence: None)
  Receive Date: 20050707
  Receipt Date: 20050207
  Transmission Date: 20060218
  Serious: No
  Sender: FDA-Public Use
  Company Number: 05H-163-0290642-00

PATIENT
  Sex: Male

DRUGS (1)
  1. LIDOCAINE HCL [Suspect]
     Indication: ANAESTHESIA
     Dosage: 2-3 CC, ONCE, INJECTION
     Dates: start: 20050204, end: 20050204

REACTIONS (1)
  - CONVULSION [None]
